FAERS Safety Report 5999808-0 (Version None)
Quarter: 2008Q4

REPORT INFORMATION
  Report Type: 
  Country: None (occurrence: None)
  Receive Date: 20081215
  Receipt Date: 20080822
  Transmission Date: 20090506
  Serious: No
  Sender: FDA-Public Use
  Company Number: US-AMGEN-KDL301682

PATIENT
  Sex: Female

DRUGS (5)
  1. ENBREL [Suspect]
     Indication: RHEUMATOID ARTHRITIS
     Route: 058
     Dates: start: 20030701
  2. METHOTREXATE [Concomitant]
  3. NEXIUM [Concomitant]
  4. DIOVAN [Concomitant]
  5. MOBIC [Concomitant]

REACTIONS (2)
  - CATARACT OPERATION [None]
  - UVEITIS [None]
